FAERS Safety Report 8775443 (Version 1)
Quarter: 2012Q4

REPORT INFORMATION
  Report Type: Report from Study
  Country: US (occurrence: US)
  Receive Date: 20120909
  Receipt Date: 20120909
  Transmission Date: 20130627
  Serious: Yes (Other)
  Sender: FDA-Public Use
  Company Number: US-ABBOTT-12P-163-0976035-00

PATIENT
  Age: 42 Year
  Sex: Female

DRUGS (3)
  1. HUMIRA [Suspect]
     Indication: PSORIASIS
  2. ZYRTEC [Concomitant]
     Indication: SEASONAL ALLERGY
     Dosage: Over the Counter
  3. VERAMYST [Concomitant]
     Indication: SINUS DISORDER
     Dosage: 2 sprays each nostril

REACTIONS (5)
  - Mammoplasty [Not Recovered/Not Resolved]
  - Breast cyst [Unknown]
  - Arthropod bite [Recovered/Resolved]
  - Allergy to plants [Recovered/Resolved]
  - Urticaria [Unknown]
